FAERS Safety Report 9371730 (Version 1)
Quarter: 2013Q2

REPORT INFORMATION
  Report Type: Report from Study
  Country: US (occurrence: US)
  Receive Date: 20130627
  Receipt Date: 20130627
  Transmission Date: 20140414
  Serious: Yes (Hospitalization, Other)
  Sender: FDA-Public Use
  Company Number: US-MYLANLABS-2011S1020449

PATIENT
  Age: 25 Year
  Sex: Male
  Weight: 75.3 kg

DRUGS (7)
  1. CLOZAPINE TABLETS [Suspect]
     Indication: SCHIZOPHRENIA
     Route: 048
     Dates: start: 20110830, end: 20121108
  2. CLOZAPINE TABLETS [Suspect]
     Indication: SCHIZOPHRENIA
     Dates: end: 2011
  3. HUMIRA [Suspect]
     Indication: AUTOIMMUNE DISORDER
  4. CLONAZEPAM [Concomitant]
     Route: 048
  5. WELLBUTRIN [Concomitant]
     Route: 048
  6. BENZOTROPINE [Concomitant]
     Route: 048
  7. HUMIRA [Concomitant]
     Dosage: INJECTION

REACTIONS (2)
  - Granulocytopenia [Recovered/Resolved]
  - Leukopenia [Recovered/Resolved]
